FAERS Safety Report 21120507 (Version 1)
Quarter: 2022Q3

REPORT INFORMATION
  Report Type: Spontaneous
  Country: JP (occurrence: JP)
  Receive Date: 20220722
  Receipt Date: 20220722
  Transmission Date: 20221027
  Serious: Yes (Death, Hospitalization, Other)
  Sender: FDA-Public Use
  Company Number: JP-GSKJP-JP2022JPN108446AA

PATIENT

DRUGS (5)
  1. LAMICTAL [Suspect]
     Active Substance: LAMOTRIGINE
     Dosage: UNK
  2. ARIPIPRAZOLE [Concomitant]
     Active Substance: ARIPIPRAZOLE
     Dosage: UNK
  3. OLANZAPINE [Concomitant]
     Active Substance: OLANZAPINE
     Dosage: UNK
  4. FLUNITRAZEPAM [Concomitant]
     Active Substance: FLUNITRAZEPAM
     Dosage: UNK
  5. LEMBOREXANT [Concomitant]
     Active Substance: LEMBOREXANT
     Dosage: UNK

REACTIONS (20)
  - Neuroleptic malignant syndrome [Fatal]
  - Schizophrenia [Unknown]
  - Mental impairment [Unknown]
  - Agitation [Recovered/Resolved]
  - Cardio-respiratory arrest [Unknown]
  - Haemorrhage subcutaneous [Unknown]
  - Circulatory collapse [Unknown]
  - Pulmonary oedema [Unknown]
  - Visceral congestion [Unknown]
  - Gastritis erosive [Unknown]
  - Rhabdomyolysis [Unknown]
  - Feeding disorder [Unknown]
  - Pyrexia [Unknown]
  - Conjunctival hyperaemia [Unknown]
  - Uterine leiomyoma [Unknown]
  - Ovarian cyst [Unknown]
  - Paranoia [Unknown]
  - Treatment noncompliance [Unknown]
  - Overdose [Unknown]
  - Therapeutic product effect incomplete [Unknown]
